FAERS Safety Report 7431983-3 (Version None)
Quarter: 2011Q1

REPORT INFORMATION
  Report Type: 
  Country: None (occurrence: None)
  Receive Date: 20110302
  Receipt Date: 20101022
  Transmission Date: 20110831
  Serious: No
  Sender: FDA-Public Use
  Company Number: 020944

PATIENT
  Sex: Male

DRUGS (5)
  1. CIMZIA [Suspect]
     Indication: CROHN'S DISEASE
     Dosage: 400 UNITS SUBCUTANEOUS
     Route: 058
     Dates: start: 20090701
  2. AZATHIOPRINE [Suspect]
     Dates: start: 20100901, end: 20101011
  3. INSULIN [Concomitant]
  4. VITAMIN D [Concomitant]
  5. PREDNISONE [Concomitant]

REACTIONS (1)
  - HEPATIC ENZYME INCREASED [None]
